FAERS Safety Report 10916030 (Version 1)
Quarter: 2015Q1

REPORT INFORMATION
  Report Type: Spontaneous
  Country: CA (occurrence: CA)
  Receive Date: 20150316
  Receipt Date: 20150316
  Transmission Date: 20150721
  Serious: Yes (Other)
  Sender: FDA-Public Use
  Company Number: PHHY2015CA030205

PATIENT
  Age: 72 Year
  Sex: Female

DRUGS (7)
  1. LETROZOLE. [Suspect]
     Active Substance: LETROZOLE
     Indication: INVASIVE DUCTAL BREAST CARCINOMA
     Route: 065
  2. GEMCITABINE [Suspect]
     Active Substance: GEMCITABINE\GEMCITABINE HYDROCHLORIDE
     Indication: INTRADUCTAL PROLIFERATIVE BREAST LESION
     Route: 065
     Dates: start: 201211, end: 201301
  3. HYDROXYCHLOROQUINE [Concomitant]
     Active Substance: HYDROXYCHLOROQUINE
     Indication: ARTHRITIS
     Dosage: 200 MG, QD
     Route: 065
  4. TAMOXIFEN [Suspect]
     Active Substance: TAMOXIFEN
     Indication: INVASIVE DUCTAL BREAST CARCINOMA
     Dosage: UNK
     Route: 065
  5. FEC [Suspect]
     Active Substance: CYCLOPHOSPHAMIDE\EPIRUBICIN HYDROCHLORIDE\FLUOROURACIL
     Indication: INVASIVE DUCTAL BREAST CARCINOMA
     Route: 065
  6. PACLITAXEL. [Suspect]
     Active Substance: PACLITAXEL
     Indication: INVASIVE DUCTAL BREAST CARCINOMA
     Route: 065
  7. PACLITAXEL. [Suspect]
     Active Substance: PACLITAXEL
     Dosage: UNK
     Route: 065
     Dates: start: 201211, end: 201301

REACTIONS (16)
  - Vertebral lesion [Unknown]
  - Therapeutic response decreased [Unknown]
  - Malignant neoplasm of choroid [Unknown]
  - Vision blurred [Recovering/Resolving]
  - Choroid neoplasm [Unknown]
  - Metastases to liver [Unknown]
  - Vitreous detachment [Unknown]
  - Central nervous system lesion [Unknown]
  - Breast cancer metastatic [Unknown]
  - Metastases to eye [Unknown]
  - Invasive ductal breast carcinoma [Unknown]
  - Drug intolerance [Unknown]
  - Subretinal fluid [Recovered/Resolved]
  - Performance status decreased [Unknown]
  - Metastases to bone [Unknown]
  - Malignant neoplasm progression [Recovering/Resolving]

NARRATIVE: CASE EVENT DATE: 2008
